FAERS Safety Report 16538524 (Version 7)
Quarter: 2019Q3

REPORT INFORMATION
  Report Type: Spontaneous
  Country: GB (occurrence: GB)
  Receive Date: 20190708
  Receipt Date: 20190918
  Transmission Date: 20191004
  Serious: Yes (Hospitalization, Other)
  Sender: FDA-Public Use
  Company Number: GB-SA-2019SA179937

PATIENT
  Age: 50 Year
  Sex: Female
  Weight: 94.5 kg

DRUGS (17)
  1. RANITIDINE. [Concomitant]
     Active Substance: RANITIDINE
  2. EZETIMIBE. [Concomitant]
     Active Substance: EZETIMIBE
     Indication: TYPE IIA HYPERLIPIDAEMIA
     Dosage: UNK
     Dates: start: 20031112
  3. VENTOLINE [SALBUTAMOL] [Concomitant]
     Active Substance: ALBUTEROL SULFATE
     Dosage: UNK
     Dates: start: 20190425
  4. PROPRANOLOL [Concomitant]
     Active Substance: PROPRANOLOL HYDROCHLORIDE
     Dosage: UNK
     Dates: start: 201905
  5. SODIUM VALPROATE [Concomitant]
     Active Substance: VALPROATE SODIUM
     Dosage: UNK
     Dates: start: 20030416
  6. DUORESP SPIROMAX [Concomitant]
     Active Substance: BUDESONIDE\FORMOTEROL
     Dosage: UNK
     Dates: start: 2008
  7. PARACETAMOL [Concomitant]
     Active Substance: ACETAMINOPHEN
     Dosage: UNK
     Dates: start: 2008, end: 20190617
  8. LANSOPRAZOLE ABBOTT [Concomitant]
     Dosage: UNK
     Dates: start: 2002
  9. MONTELUKAST [Concomitant]
     Active Substance: MONTELUKAST SODIUM
     Dosage: UNK
     Dates: start: 20190425
  10. OCTENIDINE [Concomitant]
     Active Substance: OCTENIDINE
  11. CODEINE PHOSPHATE [Concomitant]
     Active Substance: CODEINE PHOSPHATE
  12. CARBAMAZEPINE A [Concomitant]
     Active Substance: CARBAMAZEPINE
     Dosage: UNK
     Dates: start: 1996
  13. SANDO K [POTASSIUM CHLORIDE] [Concomitant]
     Indication: HYPOKALAEMIA
     Dosage: 2 DF, TID
     Route: 048
     Dates: start: 20190622
  14. DULOXETINE. [Concomitant]
     Active Substance: DULOXETINE
     Dosage: UNK
     Dates: start: 20160510
  15. ENOXAPARIN [Concomitant]
     Active Substance: ENOXAPARIN
  16. PRALUENT [Suspect]
     Active Substance: ALIROCUMAB
     Dosage: UNK UNK, QOW
     Dates: start: 20130726
  17. ROSUVASTATIN. [Concomitant]
     Active Substance: ROSUVASTATIN
     Indication: TYPE IIA HYPERLIPIDAEMIA
     Dosage: UNK
     Dates: start: 20060719

REACTIONS (4)
  - Seizure [Recovered/Resolved]
  - Vomiting [Recovered/Resolved]
  - Abdominal pain upper [Recovered/Resolved]
  - Tremor [Recovered/Resolved]

NARRATIVE: CASE EVENT DATE: 20190617
